FAERS Safety Report 9820048 (Version 2)
Quarter: 2014Q1

REPORT INFORMATION
  Report Type: Spontaneous
  Country: US (occurrence: None)
  Receive Date: 20131223
  Receipt Date: 20140228
  Transmission Date: 20141002
  Serious: Yes (Other)
  Sender: FDA-Public Use
  Company Number: 220964

PATIENT
  Age: 62 Year
  Sex: Male

DRUGS (1)
  1. PICATO (0.015 %) [Suspect]
     Indication: PHOTOSENSITIVITY REACTION
     Dosage: FOR 3 DAYS, TOPICAL
     Route: 061
     Dates: start: 20130314, end: 20130316

REACTIONS (1)
  - Eye irritation [None]
